FAERS Safety Report 4809418-6 (Version None)
Quarter: 2005Q4

REPORT INFORMATION
  Report Type: 
  Country: None (occurrence: None)
  Receive Date: 20051019
  Receipt Date: 20051006
  Transmission Date: 20060501
  Serious: Yes (Other)
  Sender: FDA-Public Use
  Company Number: 2005BH002235

PATIENT
  Age: 51 Year
  Sex: Male

DRUGS (1)
  1. GAMMAGARD S/D [Suspect]
     Indication: SELECTIVE IGA IMMUNODEFICIENCY
     Dosage: EVERY MO; IV
     Route: 042
     Dates: start: 19950301, end: 19960301

REACTIONS (2)
  - HEPATITIS B [None]
  - HEPATITIS C [None]
